FAERS Safety Report 8309334-1 (Version None)
Quarter: 2012Q2

REPORT INFORMATION
  Report Type: 
  Country: None (occurrence: None)
  Receive Date: 20120425
  Receipt Date: 20120416
  Transmission Date: 20120825
  Serious: Yes (Life-Threatening, Hospitalization, Other)
  Sender: FDA-Public Use
  Company Number: FR-ASTRAZENECA-2012SE25917

PATIENT
  Sex: Female

DRUGS (2)
  1. OTHER UNSPECIFIED MEDICATIONS [Suspect]
     Route: 065
  2. QUETIAPINE FUMARATE [Suspect]
     Indication: DEPRESSION
     Route: 048

REACTIONS (1)
  - TOXIC EPIDERMAL NECROLYSIS [None]
